FAERS Safety Report 25538451 (Version 1)
Quarter: 2025Q3

REPORT INFORMATION
  Report Type: Report from Study
  Country: EU (occurrence: EU)
  Receive Date: 20250710
  Receipt Date: 20250710
  Transmission Date: 20251021
  Serious: Yes (Death)
  Sender: AUROBINDO
  Company Number: EU-STADA-01411163

PATIENT
  Age: 34 Year
  Sex: Female

DRUGS (5)
  1. SEVELAMER CARBONATE [Suspect]
     Active Substance: SEVELAMER CARBONATE
     Indication: Hyperphosphataemia
     Dosage: 800 MILLIGRAM, 3 TIMES A DAY
     Route: 065
  2. CISPLATIN [Concomitant]
     Active Substance: CISPLATIN
     Indication: Cholangiocarcinoma
     Route: 065
  3. GEMCITABINE [Concomitant]
     Active Substance: GEMCITABINE
     Indication: Cholangiocarcinoma
     Route: 065
  4. PEMIGATINIB [Concomitant]
     Active Substance: PEMIGATINIB
     Indication: Cholangiocarcinoma
     Dosage: 13.5 MILLIGRAM, ONCE A DAY(ON AN INTERMITTENT DOSING SCHEDULE (2 WEEKS ON FOLLOWED BY 1 WEEK OFF)
     Route: 065
  5. PEMIGATINIB [Concomitant]
     Active Substance: PEMIGATINIB
     Dosage: 9 MILLIGRAM, ONCE A DAY
     Route: 065

REACTIONS (2)
  - Nausea [Fatal]
  - Drug ineffective [Fatal]
